FAERS Safety Report 21027555 (Version 1)
Quarter: 2022Q2

REPORT INFORMATION
  Report Type: Spontaneous
  Country: US (occurrence: US)
  Receive Date: 20220630
  Receipt Date: 20220630
  Transmission Date: 20220720
  Serious: Yes (Other)
  Sender: FDA-Public Use
  Company Number: US-PURDUE PHARMA-USA-2022-0294807

PATIENT
  Sex: Female

DRUGS (2)
  1. DILAUDID [Interacting]
     Active Substance: HYDROMORPHONE HYDROCHLORIDE
     Indication: Pain
     Dosage: UNKNOWN
     Route: 048
  2. MINIPRESS [Interacting]
     Active Substance: PRAZOSIN HYDROCHLORIDE
     Indication: Post-traumatic stress disorder
     Dosage: UNKNOWN
     Route: 065

REACTIONS (11)
  - Myocardial infarction [Unknown]
  - Pneumonia [Unknown]
  - Anaemia [Unknown]
  - Oedema [Unknown]
  - Throat irritation [Unknown]
  - Weight fluctuation [Unknown]
  - Abdominal pain [Unknown]
  - Abscess [Unknown]
  - Anxiety [Unknown]
  - Clostridium test positive [Unknown]
  - Drug interaction [Unknown]
